FAERS Safety Report 8319400-2 (Version None)
Quarter: 2012Q2

REPORT INFORMATION
  Report Type: 
  Country: None (occurrence: None)
  Receive Date: 20120427
  Receipt Date: 20120423
  Transmission Date: 20120825
  Serious: Yes (Death)
  Sender: FDA-Public Use
  Company Number: PHHY2012US035349

PATIENT
  Age: 37 Year
  Sex: Female

DRUGS (7)
  1. CLINDAMYCIN [Suspect]
     Dosage: UNK UKN, UNK
  2. CLOZAPINE [Suspect]
     Dosage: UNK UKN, UNK
  3. LAMOTRGINE [Suspect]
  4. GLYBURIDE [Suspect]
     Dosage: UNK UKN, UNK
  5. CYCLOBENZAPRINE [Suspect]
     Dosage: UNK UKN, UNK
  6. CARBAMAZEPINE [Suspect]
     Dosage: UNK UKN, UNK
  7. ATENOLOL [Suspect]
     Dosage: UNK UKN, UNK

REACTIONS (1)
  - COMPLETED SUICIDE [None]
